FAERS Safety Report 4414975-8 (Version None)
Quarter: 2004Q3

REPORT INFORMATION
  Report Type: 
  Country: None (occurrence: None)
  Receive Date: 20040803
  Receipt Date: 20040803
  Transmission Date: 20050211
  Serious: Yes (Hospitalization)
  Sender: FDA-Public Use
  Company Number: None

PATIENT
  Age: 5 Year
  Sex: Male
  Weight: 24.0406 kg

DRUGS (1)
  1. AMOXICILLIN [Suspect]
     Indication: EAR INFECTION
     Dosage: 3TIMES DAILY ORAL
     Route: 048
     Dates: start: 20040312, end: 20040320

REACTIONS (3)
  - ERYTHEMA MULTIFORME [None]
  - JOINT SWELLING [None]
  - STEVENS-JOHNSON SYNDROME [None]
